FAERS Safety Report 5239712-9 (Version None)
Quarter: 2007Q1

REPORT INFORMATION
  Report Type: 
  Country: None (occurrence: None)
  Receive Date: 20070214
  Receipt Date: 20070214
  Transmission Date: 20070707
  Serious: No
  Sender: FDA-Public Use
  Company Number: None

PATIENT

DRUGS (1)
  1. SLOW FE  NOVARTIS [Suspect]
     Indication: BLOOD IRON DECREASED
     Dosage: 160 MG  PO
     Route: 048
     Dates: start: 20070211, end: 20070213

REACTIONS (1)
  - PHARMACEUTICAL PRODUCT COMPLAINT [None]
